FAERS Safety Report 5206040-7 (Version None)
Quarter: 2007Q1

REPORT INFORMATION
  Report Type: 
  Country: None (occurrence: None)
  Receive Date: 20070105
  Receipt Date: 20061221
  Transmission Date: 20070707
  Serious: Yes (Other)
  Sender: FDA-Public Use
  Company Number: GXKR2006GB08470

PATIENT
  Age: 74 Year
  Sex: Female

DRUGS (1)
  1. MIRTAZAPINE [Suspect]

REACTIONS (1)
  - RENAL FAILURE [None]
